FAERS Safety Report 8610938-7 (Version None)
Quarter: 2012Q3

REPORT INFORMATION
  Report Type: 
  Country: None (occurrence: None)
  Receive Date: 20120822
  Receipt Date: 20120821
  Transmission Date: 20120928
  Serious: Yes (Hospitalization)
  Sender: FDA-Public Use
  Company Number: PHHY2012IN072021

PATIENT
  Sex: Female

DRUGS (2)
  1. ZOLEDRONOC ACID [Suspect]
     Dosage: 5MG/100ML
     Route: 042
  2. HYPOGLYCEMIC [Concomitant]

REACTIONS (2)
  - MYOCARDIAL INFARCTION [None]
  - CHEST PAIN [None]
